FAERS Safety Report 5040388-4 (Version None)
Quarter: 2006Q2

REPORT INFORMATION
  Report Type: 
  Country: None (occurrence: None)
  Receive Date: 20060630
  Receipt Date: 20051018
  Transmission Date: 20061013
  Serious: Yes (Hospitalization)
  Sender: FDA-Public Use
  Company Number: US-GLAXOSMITHKLINE-A0578880A

PATIENT
  Age: 10 Year
  Sex: Female

DRUGS (1)
  1. PAXIL [Suspect]
     Indication: DEPRESSION
     Dosage: 10MG PER DAY
     Route: 048
     Dates: start: 20011010, end: 20011201

REACTIONS (7)
  - AGGRESSION [None]
  - CONTUSION [None]
  - EMOTIONAL DISTRESS [None]
  - EPISTAXIS [None]
  - NIGHTMARE [None]
  - SCRATCH [None]
  - THINKING ABNORMAL [None]
